FAERS Safety Report 13994678 (Version 1)
Quarter: 2017Q3

REPORT INFORMATION
  Report Type: Spontaneous
  Country: US (occurrence: US)
  Receive Date: 20170921
  Receipt Date: 20170921
  Transmission Date: 20171128
  Serious: Yes (Other)
  Sender: FDA-Public Use
  Company Number: US-ROCHE-1996122

PATIENT
  Age: 40 Year
  Sex: Male

DRUGS (3)
  1. ACTIVASE [Suspect]
     Active Substance: ALTEPLASE
     Route: 065
  2. ACTIVASE [Suspect]
     Active Substance: ALTEPLASE
     Indication: DEEP VEIN THROMBOSIS
     Dosage: 0.5MG/H,
     Route: 065
  3. ACTIVASE [Suspect]
     Active Substance: ALTEPLASE
     Route: 065

REACTIONS (1)
  - Treatment failure [Unknown]
